FAERS Safety Report 12707369 (Version 1)
Quarter: 2016Q3

REPORT INFORMATION
  Report Type: Spontaneous
  Country: TR (occurrence: TR)
  Receive Date: 20160901
  Receipt Date: 20160901
  Transmission Date: 20161109
  Serious: Yes (Hospitalization)
  Sender: FDA-Public Use
  Company Number: TR-FRESENIUS KABI-FK201605987

PATIENT
  Age: 22 Year
  Sex: Female

DRUGS (1)
  1. DOXYCYCLINE FOR INJECTION (MANUFACTURER UNKNOWN) [Suspect]
     Active Substance: DOXYCYCLINE
     Indication: ACNE
     Route: 048

REACTIONS (2)
  - Pancreatitis acute [Recovered/Resolved]
  - Gastric ulcer [Recovered/Resolved]
